FAERS Safety Report 7533249-X (Version None)
Quarter: 2011Q2

REPORT INFORMATION
  Report Type: 
  Country: None (occurrence: None)
  Receive Date: 20110608
  Receipt Date: 20110112
  Transmission Date: 20111010
  Serious: Yes (Other)
  Sender: FDA-Public Use
  Company Number: US-BAYER-201037538NA

PATIENT
  Age: 33 Year
  Sex: Female
  Weight: 57.143 kg

DRUGS (10)
  1. VALIUM [Concomitant]
     Dosage: 10 MG, UNK
     Route: 048
     Dates: start: 20040317
  2. MOTRIN [Concomitant]
     Dosage: UNK
     Route: 048
     Dates: start: 20040317
  3. VICODIN [Concomitant]
  4. PEPCID [Concomitant]
     Dosage: 20 MG, UNK
     Route: 048
     Dates: start: 20040317
  5. KEFZOL [Concomitant]
     Dosage: UNK
     Route: 042
     Dates: start: 20040317
  6. YAZ [Suspect]
     Indication: PRODUCT USED FOR UNKNOWN INDICATION
     Dosage: UNK UNK, UNK
     Route: 048
     Dates: start: 20010101, end: 20040301
  7. YASMIN [Suspect]
     Indication: CONTRACEPTION
     Dosage: UNK UNK, QD
     Route: 048
     Dates: start: 20010101, end: 20050101
  8. DROSPIRENONE AND ETHINYL ESTRADIOL [Suspect]
     Indication: PRODUCT USED FOR UNKNOWN INDICATION
     Dosage: UNK UNK, UNK
     Route: 048
     Dates: start: 20010101, end: 20040301
  9. PHENERGAN HCL [Concomitant]
  10. REGLAN [Concomitant]
     Dosage: 10 MG, UNK
     Route: 048
     Dates: start: 20040317

REACTIONS (7)
  - PAIN [None]
  - SCAR [None]
  - EMOTIONAL DISTRESS [None]
  - INJURY [None]
  - CHOLECYSTITIS CHRONIC [None]
  - CHOLELITHIASIS [None]
  - GALLBLADDER INJURY [None]
